FAERS Safety Report 5587061-1 (Version None)
Quarter: 2008Q1

REPORT INFORMATION
  Report Type: 
  Country: None (occurrence: None)
  Receive Date: 20080110
  Receipt Date: 20080103
  Transmission Date: 20080703
  Serious: Yes (Other)
  Sender: FDA-Public Use
  Company Number: B0361192A

PATIENT
  Age: 55 Year
  Sex: Female

DRUGS (8)
  1. PAROXETINE HYDROCHLORIDE [Suspect]
     Route: 065
     Dates: start: 19940823
  2. ZOLPIDEM [Concomitant]
  3. BECLOMETHASONE DIPROPIONATE [Concomitant]
  4. ALBUTEROL [Concomitant]
  5. SALMETEROL [Concomitant]
  6. FLUTICASONE PROPIONATE [Concomitant]
  7. DOTHIEPIN HYDROCHLORIDE [Concomitant]
     Dates: start: 19850815
  8. DIAZEPAM [Concomitant]
     Route: 065
     Dates: start: 20020830

REACTIONS (15)
  - AGITATION [None]
  - AGORAPHOBIA [None]
  - ANXIETY [None]
  - ARTHRALGIA [None]
  - ASTHMA [None]
  - DISORIENTATION [None]
  - DRUG WITHDRAWAL SYNDROME [None]
  - GASTRIC DISORDER [None]
  - HEADACHE [None]
  - MIGRAINE [None]
  - MYALGIA [None]
  - NIGHTMARE [None]
  - PANIC ATTACK [None]
  - PARAESTHESIA [None]
  - SUICIDAL IDEATION [None]
